FAERS Safety Report 6419761-5 (Version None)
Quarter: 2009Q4

REPORT INFORMATION
  Report Type: 
  Country: None (occurrence: None)
  Receive Date: 20091029
  Receipt Date: 20091021
  Transmission Date: 20100525
  Serious: Yes (Other)
  Sender: FDA-Public Use
  Company Number: BR-ABBOTT-09P-020-0604236-00

PATIENT
  Sex: Male
  Weight: 85 kg

DRUGS (11)
  1. HUMIRA [Suspect]
     Indication: RHEUMATOID ARTHRITIS
     Route: 058
     Dates: start: 20080527
  2. HUMIRA [Suspect]
     Indication: ANKYLOSING SPONDYLITIS
  3. METHOTREXATE [Suspect]
     Indication: RHEUMATOID ARTHRITIS
     Route: 048
     Dates: start: 20070801, end: 20080801
  4. METHOTREXATE [Suspect]
     Indication: ANKYLOSING SPONDYLITIS
     Route: 048
     Dates: start: 20080801
  5. METOCLOPRAMINE (PLASIL) + HYOSCYAMINE (BUSCOPAN) [Suspect]
     Indication: VOMITING
     Route: 042
     Dates: start: 20080101
  6. METOCLOPRAMINE (PLASIL) + HYOSCYAMINE (BUSCOPAN) [Suspect]
     Indication: MIGRAINE
  7. DICLOFENAC [Concomitant]
     Indication: ARTHRALGIA
     Dosage: GEL
  8. PREDNISONE/DICLOFENAC/CHLOROQUINE [Concomitant]
     Indication: PAIN
     Dosage: 3MG/40MG/100MG
     Route: 048
     Dates: start: 20060101
  9. FOLIC ACID [Concomitant]
     Indication: RHEUMATOID ARTHRITIS
     Dosage: FORM STRENGTH: 5 MG, 2 PER WEEK
     Route: 048
     Dates: start: 20070801
  10. FOLIC ACID [Concomitant]
     Indication: ANKYLOSING SPONDYLITIS
  11. PROMETHAZINE (FENERGAN) + ADEXA (?) [Concomitant]
     Indication: ANAPHYLACTIC SHOCK

REACTIONS (9)
  - ANAPHYLACTIC SHOCK [None]
  - ARTHRALGIA [None]
  - FATIGUE [None]
  - HYPERTENSIVE CRISIS [None]
  - INJECTION SITE IRRITATION [None]
  - METABOLIC ACIDOSIS [None]
  - MIGRAINE [None]
  - NAUSEA [None]
  - VOMITING [None]
